FAERS Safety Report 4439672-4 (Version None)
Quarter: 2004Q3

REPORT INFORMATION
  Report Type: 
  Country: None (occurrence: None)
  Receive Date: 20040902
  Receipt Date: 20040823
  Transmission Date: 20050211
  Serious: Yes (Hospitalization, Other)
  Sender: FDA-Public Use
  Company Number: 200418428GDDC

PATIENT
  Age: 37 Year
  Sex: Male

DRUGS (2)
  1. RIFAMPICIN [Suspect]
     Indication: TUBERCULOSIS PROPHYLAXIS
     Route: 048
     Dates: start: 20020415, end: 20020705
  2. PYRAZINAMIDE [Suspect]
     Indication: TUBERCULOSIS PROPHYLAXIS
     Route: 048
     Dates: start: 20020415, end: 20020705

REACTIONS (10)
  - ASPARTATE AMINOTRANSFERASE INCREASED [None]
  - BLOOD IMMUNOGLOBULIN G INCREASED [None]
  - FATIGUE [None]
  - HEPATIC NECROSIS [None]
  - HEPATITIS C ANTIBODY POSITIVE [None]
  - HEPATOTOXICITY [None]
  - LIVER TRANSPLANT [None]
  - MYALGIA [None]
  - NAUSEA [None]
  - TREATMENT NONCOMPLIANCE [None]
